FAERS Safety Report 17720246 (Version 1)
Quarter: 2020Q2

REPORT INFORMATION
  Report Type: Spontaneous
  Country: US (occurrence: US)
  Receive Date: 20200428
  Receipt Date: 20200428
  Transmission Date: 20200714
  Serious: No
  Sender: FDA-Public Use
  Company Number: US-TEVA-2020-US-1227447

PATIENT
  Sex: Female

DRUGS (1)
  1. ALPRAZOLAM ACTAVIS [Suspect]
     Active Substance: ALPRAZOLAM
     Dosage: FREQUENCY TAKES 1 TO 2 ALPRAZOLAM EVERY DAY
     Route: 065

REACTIONS (1)
  - Nausea [Unknown]
